FAERS Safety Report 6956063-2 (Version None)
Quarter: 2010Q3

REPORT INFORMATION
  Report Type: 
  Country: None (occurrence: None)
  Receive Date: 20100830
  Receipt Date: 20091211
  Transmission Date: 20110219
  Serious: No
  Sender: FDA-Public Use
  Company Number: US-AMGEN-QUU372738

PATIENT
  Sex: Female

DRUGS (7)
  1. NEUPOGEN [Suspect]
     Indication: CHEMOTHERAPY
     Dates: start: 20090921
  2. LORAZEPAM [Concomitant]
  3. MOTRIN [Concomitant]
  4. NAPROXEN [Concomitant]
  5. TYLENOL-500 [Concomitant]
  6. TAXOL [Concomitant]
     Dates: start: 20090921
  7. CARBOPLATIN [Concomitant]
     Dates: start: 20090921

REACTIONS (2)
  - BONE PAIN [None]
  - WHITE BLOOD CELL COUNT DECREASED [None]
